FAERS Safety Report 6298823-X (Version None)
Quarter: 2009Q3

REPORT INFORMATION
  Report Type: 
  Country: None (occurrence: None)
  Receive Date: 20090805
  Receipt Date: 20090805
  Transmission Date: 20100115
  Serious: Yes (Disabling)
  Sender: FDA-Public Use
  Company Number: None

PATIENT
  Sex: Female
  Weight: 71.6683 kg

DRUGS (2)
  1. FEMARA [Suspect]
     Indication: BREAST CANCER RECURRENT
     Dosage: 1 PILL 1 PER DAY PO
     Route: 048
     Dates: start: 20081009, end: 20090601
  2. FEMARA [Suspect]
     Indication: PROPHYLAXIS
     Dosage: 1 PILL 1 PER DAY PO
     Route: 048
     Dates: start: 20081009, end: 20090601

REACTIONS (7)
  - ARTHRALGIA [None]
  - BLOOD CHOLESTEROL INCREASED [None]
  - BONE PAIN [None]
  - FOOT FRACTURE [None]
  - PAIN IN EXTREMITY [None]
  - STRESS FRACTURE [None]
  - TENDONITIS [None]
